FAERS Safety Report 7621023-5 (Version None)
Quarter: 2011Q3

REPORT INFORMATION
  Report Type: 
  Country: None (occurrence: None)
  Receive Date: 20110719
  Receipt Date: 20110523
  Transmission Date: 20111222
  Serious: No
  Sender: FDA-Public Use
  Company Number: US-KINGPHARMUSA00001-K201100636

PATIENT
  Age: 54 Year
  Sex: Male

DRUGS (3)
  1. ALLEGRA [Concomitant]
     Indication: SEASONAL ALLERGY
  2. LEVOXYL [Suspect]
     Indication: HYPOTHYROIDISM
     Dosage: 175 MCG, QD
     Route: 048
  3. ALBUTEROL SULFATE AUTOHALER [Concomitant]
     Indication: BRONCHIAL HYPERREACTIVITY

REACTIONS (6)
  - BLOOD THYROID STIMULATING HORMONE INCREASED [None]
  - TEMPERATURE INTOLERANCE [None]
  - JOINT SWELLING [None]
  - SLEEP DISORDER [None]
  - DRUG INEFFECTIVE [None]
  - SLUGGISHNESS [None]
